FAERS Safety Report 9060784 (Version 2)
Quarter: 2013Q1

REPORT INFORMATION
  Report Type: Spontaneous
  Country: US (occurrence: US)
  Receive Date: 20130204
  Receipt Date: 20130225
  Transmission Date: 20140127
  Serious: Yes (Death)
  Sender: FDA-Public Use
  Company Number: US-009507513-1301USA013531

PATIENT
  Sex: Female

DRUGS (6)
  1. EMEND [Suspect]
     Indication: HYPOPHARYNGEAL CANCER
     Dosage: AS DIRECTED-ONE CAPSULE EACH DAY FOLLOWING CHEMOTHERAPY
     Route: 048
     Dates: start: 20121218
  2. CISPLATIN [Concomitant]
  3. FLUOROURACIL [Concomitant]
  4. PHENERGAN (PROMETHAZINE HYDROCHLORIDE) [Concomitant]
  5. LEXAPRO [Concomitant]
  6. GABAPENTIN [Concomitant]

REACTIONS (1)
  - Death [Fatal]
